FAERS Safety Report 13699411 (Version 1)
Quarter: 2017Q2

REPORT INFORMATION
  Report Type: Spontaneous
  Country: IT (occurrence: IT)
  Receive Date: 20170628
  Receipt Date: 20170628
  Transmission Date: 20170830
  Serious: Yes (Other)
  Sender: FDA-Public Use
  Company Number: IT-MEDA-2017060057

PATIENT
  Age: 51 Year
  Sex: Female

DRUGS (2)
  1. INDOMETACIN [Suspect]
     Active Substance: INDOMETHACIN
     Indication: NECK PAIN
     Route: 048
  2. ZOLPIDEM [Suspect]
     Active Substance: ZOLPIDEM\ZOLPIDEM TARTRATE
     Route: 048

REACTIONS (2)
  - Psychomotor retardation [Unknown]
  - Sopor [Unknown]

NARRATIVE: CASE EVENT DATE: 20170520
